FAERS Safety Report 8389975-6 (Version None)
Quarter: 2012Q2

REPORT INFORMATION
  Report Type: 
  Country: None (occurrence: None)
  Receive Date: 20120529
  Receipt Date: 20120525
  Transmission Date: 20120825
  Serious: No
  Sender: FDA-Public Use
  Company Number: US-PFIZER INC-2012127100

PATIENT
  Sex: Male
  Weight: 83.9 kg

DRUGS (2)
  1. SUTENT [Suspect]
     Indication: RENAL CANCER STAGE IV
     Dosage: 50 MG, DAILY 4 WKS ON, 2 WKS OFF
     Dates: start: 20120507, end: 20120524
  2. INSULIN [Concomitant]
     Indication: TYPE 2 DIABETES MELLITUS
     Dosage: 20 IU, DAILY

REACTIONS (1)
  - BLISTER [None]
